FAERS Safety Report 20470515 (Version 1)
Quarter: 2022Q1

REPORT INFORMATION
  Report Type: Spontaneous
  Country: US (occurrence: US)
  Receive Date: 20220214
  Receipt Date: 20220214
  Transmission Date: 20220423
  Serious: No
  Sender: FDA-Public Use
  Company Number: US-TAKEDA-2022TUS009756

PATIENT
  Sex: Female
  Weight: 73 kg

DRUGS (9)
  1. DEXILANT [Suspect]
     Active Substance: DEXLANSOPRAZOLE
     Indication: Gastrooesophageal reflux disease
     Dosage: 60 MILLIGRAM, QD
     Route: 048
     Dates: start: 20210228, end: 20220209
  2. DEXILANT [Suspect]
     Active Substance: DEXLANSOPRAZOLE
     Indication: Vomiting projectile
  3. AMLODIPINE [Concomitant]
     Active Substance: AMLODIPINE BESYLATE
     Dosage: 10 MILLIGRAM, QD
     Route: 065
  4. XELJANZ XR [Concomitant]
     Active Substance: TOFACITINIB CITRATE
     Dosage: 11 MILLIGRAM, QD
     Route: 065
  5. MODAFINIL [Concomitant]
     Active Substance: MODAFINIL
     Dosage: UNK
     Route: 065
  6. CLONIDINE [Concomitant]
     Active Substance: CLONIDINE
     Dosage: 0.3 MILLIGRAM, QD
     Route: 065
  7. LOSARTAN [Concomitant]
     Active Substance: LOSARTAN
     Dosage: UNK
     Route: 065
  8. AMPICILLIN [Concomitant]
     Active Substance: AMPICILLIN
     Indication: Urinary tract infection
     Dosage: 500 MILLIGRAM
     Route: 065
  9. POTASSIUM [Concomitant]
     Active Substance: POTASSIUM
     Dosage: UNK
     Route: 065

REACTIONS (6)
  - Extra dose administered [Unknown]
  - Joint swelling [Unknown]
  - Peripheral swelling [Unknown]
  - Urinary tract infection [Unknown]
  - Fall [Unknown]
  - Ligament sprain [Unknown]
